FAERS Safety Report 15686891 (Version 3)
Quarter: 2020Q1

REPORT INFORMATION
  Report Type: Spontaneous
  Country: US (occurrence: US)
  Receive Date: 20181204
  Receipt Date: 20200204
  Transmission Date: 20200409
  Serious: Yes (Hospitalization)
  Sender: FDA-Public Use
  Company Number: US-PORTOLA PHARMACEUTICALS, INC.-2018US000105

PATIENT

DRUGS (3)
  1. APIXABAN [Concomitant]
     Active Substance: APIXABAN
  2. ANDEXXA [Suspect]
     Active Substance: ANDEXANET ALFA
     Indication: HAEMORRHAGE INTRACRANIAL
     Dosage: UNK, INTRAVENOUS
     Route: 042
     Dates: start: 20180702, end: 20180702
  3. ANDEXXA [Suspect]
     Active Substance: ANDEXANET ALFA
     Indication: PROCOAGULANT THERAPY
     Dosage: UNK, BOLUS
     Route: 040
     Dates: start: 20180702, end: 20180702

REACTIONS (1)
  - Thrombophlebitis superficial [Unknown]

NARRATIVE: CASE EVENT DATE: 20180716
